FAERS Safety Report 4646884-3 (Version None)
Quarter: 2005Q2

REPORT INFORMATION
  Report Type: 
  Country: None (occurrence: None)
  Receive Date: 20050331
  Receipt Date: 20050214
  Transmission Date: 20051028
  Serious: No
  Sender: FDA-Public Use
  Company Number: 05P-163-0290911-00

PATIENT
  Age: 68 Year
  Sex: Female

DRUGS (9)
  1. HUMIRA [Suspect]
     Indication: RHEUMATOID ARTHRITIS
     Dosage: 40 MG, 1 IN 2 WK, SUBCUTANEOUS
     Route: 058
     Dates: start: 20030101
  2. RISEDRONATE SODIUM [Suspect]
     Indication: OSTEOPOROSIS
     Dosage: 1 IN 1 WK, PER ORAL
     Route: 048
     Dates: start: 20050101, end: 20050101
  3. GLIBENCLAMIDE [Concomitant]
  4. ROSIGLITAZONE MALEATE [Concomitant]
  5. RANITIDINE HYDROCHLORIDE [Concomitant]
  6. MACROGOL [Concomitant]
  7. LIQUID VITAMINS [Concomitant]
  8. CALCIUM GLUCONATE [Concomitant]
  9. ASCORBIC ACID [Concomitant]

REACTIONS (9)
  - BLOOD CHOLESTEROL INCREASED [None]
  - BLOOD GLUCOSE DECREASED [None]
  - BLOOD PRESSURE INCREASED [None]
  - COUGH [None]
  - DYSURIA [None]
  - HOT FLUSH [None]
  - HYPERHIDROSIS [None]
  - RHEUMATOID ARTHRITIS [None]
  - TREMOR [None]
